FAERS Safety Report 13718656 (Version 2)
Quarter: 2017Q3

REPORT INFORMATION
  Report Type: Spontaneous
  Country: DK (occurrence: DK)
  Receive Date: 20170705
  Receipt Date: 20170714
  Transmission Date: 20171127
  Serious: Yes (Other)
  Sender: FDA-Public Use
  Company Number: DK-TEVA-781589ACC

PATIENT
  Age: 29 Year
  Sex: Female

DRUGS (4)
  1. IMUREL [Suspect]
     Active Substance: AZATHIOPRINE SODIUM
     Dosage: REGIMEN 1
  2. PREDNISOLONE. [Suspect]
     Active Substance: PREDNISOLONE
     Route: 048
  3. MERCAPTOPURINE. [Suspect]
     Active Substance: MERCAPTOPURINE
     Indication: COLITIS ULCERATIVE
  4. OCTASA [Suspect]
     Active Substance: MESALAMINE
     Dosage: REGIMEN 1

REACTIONS (6)
  - Angina pectoris [Unknown]
  - Cardiospasm [Unknown]
  - Cushingoid [Unknown]
  - Fungal infection [Unknown]
  - Off label use [Unknown]
  - Immunodeficiency [Unknown]
